FAERS Safety Report 8614651-1 (Version None)
Quarter: 2012Q3

REPORT INFORMATION
  Report Type: 
  Country: None (occurrence: None)
  Receive Date: 20120823
  Receipt Date: 20120822
  Transmission Date: 20120928
  Serious: Yes (Life-Threatening, Hospitalization, Other)
  Sender: FDA-Public Use
  Company Number: PHHY2012AU026374

PATIENT
  Sex: Male
  Weight: 109 kg

DRUGS (17)
  1. OMEPRAZOLE [Concomitant]
     Dosage: 20 MG, QD
     Route: 048
     Dates: start: 20120201
  2. VENLAFAXINE HCL [Concomitant]
     Dosage: 150 MG, UNK
     Route: 048
  3. CLOZARIL [Suspect]
     Indication: SCHIZOPHRENIA, PARANOID TYPE
     Dosage: 325 MG
     Route: 048
     Dates: start: 20040810
  4. QUETIAPINE [Concomitant]
     Dosage: 200 MG, NOCTE
  5. OLANZAPINE [Concomitant]
     Indication: PSYCHOTIC DISORDER
     Dosage: UNK UKN, UNK
  6. CLOZARIL [Suspect]
     Dosage: 375 MG, UNK
     Route: 048
     Dates: start: 20120301, end: 20120312
  7. SEROQUEL [Concomitant]
     Indication: PSYCHOTIC DISORDER
     Dosage: 200 MG, UNK
     Route: 048
  8. DIAZEPAM [Concomitant]
     Indication: ANXIETY
     Dosage: 20 MG, QD
     Route: 048
  9. NITRAZEPAM [Concomitant]
     Dosage: 10 MG, QD
  10. CLOZAPINE [Concomitant]
     Dosage: UNK UKN, UNK
  11. MULTI-VITAMIN [Concomitant]
     Dosage: UNK UKN, UNK
     Route: 048
  12. CLOZARIL [Suspect]
     Dosage: 350 MG, QD
     Route: 048
     Dates: start: 20040811, end: 20070701
  13. EFFEXOR [Concomitant]
     Dosage: UNK UKN, UNK
  14. SEROQUEL [Concomitant]
     Dosage: 150 MG, QD
     Route: 048
  15. NITRAZEPAM [Concomitant]
     Indication: INSOMNIA
     Dosage: 10 MG, UNK
     Route: 048
     Dates: start: 20120223
  16. CLOZARIL [Suspect]
     Dosage: 275 MG, UNK
     Route: 048
     Dates: start: 20120212
  17. CLOZARIL [Suspect]
     Dosage: 300 MG, UNK
     Route: 048

REACTIONS (31)
  - DYSPNOEA [None]
  - TROPONIN I INCREASED [None]
  - AFFECTIVE DISORDER [None]
  - ELECTROCARDIOGRAM QT PROLONGED [None]
  - TENDERNESS [None]
  - WHITE BLOOD CELL COUNT INCREASED [None]
  - CHEST DISCOMFORT [None]
  - TROPONIN T INCREASED [None]
  - FATIGUE [None]
  - CHEST PAIN [None]
  - HALLUCINATION, AUDITORY [None]
  - SINUS TACHYCARDIA [None]
  - FEELING COLD [None]
  - MALAISE [None]
  - HEART RATE INCREASED [None]
  - INJURY [None]
  - PYREXIA [None]
  - MYOGLOBIN BLOOD INCREASED [None]
  - HEAD INJURY [None]
  - ELECTROCARDIOGRAM ABNORMAL [None]
  - MYOCARDITIS [None]
  - BLOOD CREATINE PHOSPHOKINASE INCREASED [None]
  - C-REACTIVE PROTEIN INCREASED [None]
  - DECREASED APPETITE [None]
  - TREMOR [None]
  - TACHYARRHYTHMIA [None]
  - SUICIDE ATTEMPT [None]
  - MYALGIA [None]
  - NAUSEA [None]
  - MENTAL IMPAIRMENT [None]
  - AGGRESSION [None]
